FAERS Safety Report 4771226-2 (Version None)
Quarter: 2005Q3

REPORT INFORMATION
  Report Type: 
  Country: None (occurrence: None)
  Receive Date: 20050914
  Receipt Date: 20050830
  Transmission Date: 20060218
  Serious: Yes (Hospitalization)
  Sender: FDA-Public Use
  Company Number: 198774

PATIENT
  Age: 48 Year
  Sex: Male
  Weight: 106.1417 kg

DRUGS (3)
  1. AVONEX [Suspect]
     Indication: MULTIPLE SCLEROSIS
     Dosage: 30 UG; QW; IM
     Route: 030
     Dates: start: 20020301, end: 20030901
  2. AVONEX [Suspect]
     Indication: MULTIPLE SCLEROSIS
     Dosage: 30 UG; QW; IM
     Route: 030
     Dates: start: 20030901
  3. AVONEX [Suspect]
     Indication: MULTIPLE SCLEROSIS
     Dosage: QW; IM
     Route: 030

REACTIONS (8)
  - ACCIDENT [None]
  - ANKLE FRACTURE [None]
  - FOOT AMPUTATION [None]
  - INFLUENZA LIKE ILLNESS [None]
  - LIMB TRAUMATIC AMPUTATION [None]
  - PROCEDURAL PAIN [None]
  - SECRETION DISCHARGE [None]
  - TANNING [None]
